FAERS Safety Report 4936399-7 (Version None)
Quarter: 2006Q1

REPORT INFORMATION
  Report Type: 
  Country: None (occurrence: None)
  Receive Date: 20060302
  Receipt Date: 20060208
  Transmission Date: 20060701
  Serious: Yes (Hospitalization)
  Sender: FDA-Public Use
  Company Number: USA0510112179

PATIENT
  Age: 70 Year
  Sex: Female

DRUGS (18)
  1. CYMBALTA [Suspect]
     Indication: ANXIETY
     Dosage: SEE IMAGE
  2. TOPAMAX [Concomitant]
  3. DIOVAN HCT [Concomitant]
  4. LOPRESSOR [Concomitant]
  5. LIPITOR [Concomitant]
  6. VERAPAMIL [Concomitant]
  7. ULTRALENTE INSULIN (INSULIN ZINC SUSPENSION) [Concomitant]
  8. COUMADIN [Concomitant]
  9. PERCOCET [Concomitant]
  10. AZOPT [Concomitant]
  11. LASIX [Concomitant]
  12. DIFLUCAN [Concomitant]
  13. LEVAQUIN [Concomitant]
  14. LIDODERM [Concomitant]
  15. DIOVAN [Concomitant]
  16. NOVOLIN N [Concomitant]
  17. COREG [Concomitant]
  18. LOVENOX [Concomitant]

REACTIONS (2)
  - AZOTAEMIA [None]
  - RENAL FAILURE ACUTE [None]
